FAERS Safety Report 5933827-5 (Version None)
Quarter: 2008Q4

REPORT INFORMATION
  Report Type: 
  Country: None (occurrence: None)
  Receive Date: 20081029
  Receipt Date: 20081021
  Transmission Date: 20090506
  Serious: Yes (Other)
  Sender: FDA-Public Use
  Company Number: US-PURDUE-USA_2008_0034167

PATIENT
  Sex: Male
  Weight: 78 kg

DRUGS (4)
  1. OXYCONTIN [Suspect]
     Indication: PAIN
     Dosage: 80 MG, SEE TEXT
     Dates: start: 20011206, end: 20030701
  2. PERCOCET [Concomitant]
     Indication: PAIN
     Dosage: 10 MG, SEE TEXT
  3. VALIUM [Concomitant]
     Indication: PAIN
     Dosage: 5 MG, DAILY
  4. PROZAC                             /00724402/ [Concomitant]
     Indication: PAIN

REACTIONS (6)
  - AMNESIA [None]
  - APTYALISM [None]
  - DENTAL CARIES [None]
  - DRY MOUTH [None]
  - MOOD ALTERED [None]
  - TOOTH LOSS [None]
